FAERS Safety Report 4788063-5 (Version None)
Quarter: 2005Q4

REPORT INFORMATION
  Report Type: 
  Country: None (occurrence: None)
  Receive Date: 20051003
  Receipt Date: 20050921
  Transmission Date: 20060501
  Serious: Yes (Hospitalization, Other)
  Sender: FDA-Public Use
  Company Number: GXKR2005NL01661

PATIENT
  Age: 15 Year
  Sex: Female

DRUGS (5)
  1. DICLOFENAC (NGX) (DICLOFENAC) UNKNOWN [Suspect]
     Indication: ARTHRALGIA
  2. NAPROXEN [Suspect]
     Indication: ARTHRALGIA
  3. PARACETAMOL (NGX) (PARACETAMOL) [Suspect]
     Indication: ARTHRALGIA
     Dosage: SEE IMAGE
     Route: 048
  4. MISOPROSTOL [Suspect]
     Indication: ARTHRALGIA
  5. TRAMADOL HCL [Concomitant]

REACTIONS (7)
  - CHILLS [None]
  - DRUG TOXICITY [None]
  - HEADACHE [None]
  - INFLUENZA LIKE ILLNESS [None]
  - MALAISE [None]
  - PYREXIA [None]
  - TEMPERATURE REGULATION DISORDER [None]
